FAERS Safety Report 25023965 (Version 1)
Quarter: 2025Q1

REPORT INFORMATION
  Report Type: Spontaneous
  Country: US (occurrence: None)
  Receive Date: 20250228
  Receipt Date: 20250228
  Transmission Date: 20250409
  Serious: No
  Sender: FDA-CTU
  Company Number: None

PATIENT
  Age: 62 Year
  Sex: Female

DRUGS (1)
  1. FEZOLINETANT [Suspect]
     Active Substance: FEZOLINETANT
     Dosage: FREQUENCY : DAILY;?
     Route: 048
     Dates: start: 20240910, end: 20241202

REACTIONS (2)
  - Hot flush [None]
  - Vomiting [None]

NARRATIVE: CASE EVENT DATE: 20241202
